FAERS Safety Report 9444279 (Version 2)
Quarter: 2013Q3

REPORT INFORMATION
  Report Type: Spontaneous
  Country: JP (occurrence: JP)
  Receive Date: 20130807
  Receipt Date: 20130822
  Transmission Date: 20140515
  Serious: Yes (Hospitalization)
  Sender: FDA-Public Use
  Company Number: PHHY2013JP084359

PATIENT
  Sex: Female

DRUGS (3)
  1. COMTAN [Suspect]
     Indication: PARKINSON^S DISEASE
     Dosage: 200 MG, DAILY
     Route: 048
  2. PARKISTON [Concomitant]
     Dosage: 200 MG, UNK
     Route: 048
  3. DOPS [Concomitant]
     Dosage: 200 MG, UNK
     Route: 048

REACTIONS (2)
  - Cholangitis [Recovering/Resolving]
  - Oral administration complication [Unknown]
